FAERS Safety Report 13004178 (Version 1)
Quarter: 2016Q4

REPORT INFORMATION
  Report Type: Spontaneous
  Country: FR (occurrence: FR)
  Receive Date: 20161206
  Receipt Date: 20161206
  Transmission Date: 20170207
  Serious: Yes (Hospitalization, Other)
  Sender: FDA-Public Use
  Company Number: PHHY2016FR164831

PATIENT
  Age: 56 Year
  Sex: Male
  Weight: 82.5 kg

DRUGS (1)
  1. AMOXICILLINE/ACIDE CLAVULANIQUE SANDOZ [Suspect]
     Active Substance: AMOXICILLIN\CLAVULANIC ACID
     Indication: PNEUMONIA ASPIRATION
     Route: 042
     Dates: start: 20161106, end: 20161109

REACTIONS (3)
  - Rhabdomyolysis [Unknown]
  - Hepatocellular injury [Recovered/Resolved]
  - Renal impairment [Recovered/Resolved]

NARRATIVE: CASE EVENT DATE: 20161109
